FAERS Safety Report 18145244 (Version 1)
Quarter: 2020Q3

REPORT INFORMATION
  Report Type: Spontaneous
  Country: US (occurrence: US)
  Receive Date: 20200813
  Receipt Date: 20200813
  Transmission Date: 20201103
  Serious: Yes (Hospitalization)
  Sender: FDA-Public Use
  Company Number: None

PATIENT
  Age: 61 Year
  Sex: Male

DRUGS (14)
  1. HUMIRA [Suspect]
     Active Substance: ADALIMUMAB
     Indication: ANKYLOSING SPONDYLITIS
     Dosage: ?          OTHER FREQUENCY:QOWK;?
     Route: 058
     Dates: start: 20180403
  2. BUPROPN [Concomitant]
  3. PROPRANOLOL [Concomitant]
     Active Substance: PROPRANOLOL HYDROCHLORIDE
  4. QUETIAPINE. [Concomitant]
     Active Substance: QUETIAPINE
  5. ARIPIPRAZOLE. [Concomitant]
     Active Substance: ARIPIPRAZOLE
  6. ATORVASTATIN [Concomitant]
     Active Substance: ATORVASTATIN
  7. METOPROLOL. [Concomitant]
     Active Substance: METOPROLOL
  8. TORSEMIDE. [Concomitant]
     Active Substance: TORSEMIDE
  9. AMLODIPINE [Concomitant]
     Active Substance: AMLODIPINE BESYLATE
  10. LITHIUM. [Concomitant]
     Active Substance: LITHIUM
  11. MULTI VITAMIN [Concomitant]
     Active Substance: VITAMINS
  12. NITROGLYCERN [Concomitant]
  13. TRIAMCINOLON [Concomitant]
  14. PANTROPRAZOLE [Concomitant]

REACTIONS (3)
  - Carbon monoxide poisoning [None]
  - Pneumonia [None]
  - Therapy cessation [None]

NARRATIVE: CASE EVENT DATE: 20200714
